FAERS Safety Report 6445733-0 (Version None)
Quarter: 2009Q4

REPORT INFORMATION
  Report Type: 
  Country: None (occurrence: None)
  Receive Date: 20091118
  Receipt Date: 20091118
  Transmission Date: 20100525
  Serious: Yes (Life-Threatening, Hospitalization, Other)
  Sender: FDA-Public Use
  Company Number: None

PATIENT
  Sex: Female
  Weight: 53.978 kg

DRUGS (2)
  1. RISPERDAL [Suspect]
     Dosage: 1 MG TEV/P.M. BEDTIME MOUTH SEPT 5 - OCT OR NOV '08
     Route: 048
     Dates: start: 20080905, end: 20080101
  2. KEPPRA [Suspect]
     Indication: CONVULSION
     Dosage: 1 2XS DAILY MOUTH
     Route: 048
     Dates: start: 20080708, end: 20080712

REACTIONS (7)
  - BLOOD ELECTROLYTES DECREASED [None]
  - CONVULSION [None]
  - FALL [None]
  - FEELING ABNORMAL [None]
  - KIDNEY INFECTION [None]
  - SKULL FRACTURE [None]
  - WRONG DRUG ADMINISTERED [None]
